FAERS Safety Report 22291864 (Version 3)
Quarter: 2025Q4

REPORT INFORMATION
  Report Type: Spontaneous
  Country: JP (occurrence: JP)
  Receive Date: 20230507
  Receipt Date: 20251223
  Transmission Date: 20260118
  Serious: Yes (Other)
  Sender: CSL BEHRING
  Company Number: JP-BEH-2023157936

PATIENT
  Age: 4 Decade
  Sex: Female

DRUGS (8)
  1. BERINERT [Suspect]
     Active Substance: HUMAN C1-ESTERASE INHIBITOR
     Indication: Hereditary angioedema with normal C1 esterase inhibitor
     Dosage: UNK INTERNATIONAL UNIT
     Route: 042
  2. BERINERT [Suspect]
     Active Substance: HUMAN C1-ESTERASE INHIBITOR
     Indication: Hereditary angioedema with normal C1 esterase inhibitor
     Dosage: UNK INTERNATIONAL UNIT
     Route: 042
  3. BERINERT [Suspect]
     Active Substance: HUMAN C1-ESTERASE INHIBITOR
     Indication: Prophylaxis
     Dosage: UNK
     Route: 042
  4. BERINERT [Suspect]
     Active Substance: HUMAN C1-ESTERASE INHIBITOR
     Indication: Prophylaxis
     Dosage: UNK
     Route: 042
  5. BERINERT [Suspect]
     Active Substance: HUMAN C1-ESTERASE INHIBITOR
     Indication: Dental care
     Dosage: 1000 IU
     Route: 042
     Dates: start: 20230426, end: 20230426
  6. BERINERT [Suspect]
     Active Substance: HUMAN C1-ESTERASE INHIBITOR
     Indication: Dental care
     Dosage: 1000 IU
     Route: 042
     Dates: start: 20230426, end: 20230426
  7. BERINERT [Suspect]
     Active Substance: HUMAN C1-ESTERASE INHIBITOR
     Indication: Hereditary angioedema
  8. BERINERT [Suspect]
     Active Substance: HUMAN C1-ESTERASE INHIBITOR
     Indication: Hereditary angioedema

REACTIONS (19)
  - Hereditary angioedema [Unknown]
  - Hereditary angioedema [Unknown]
  - Laryngeal oedema [Unknown]
  - Depressed level of consciousness [Unknown]
  - Dyspnoea [Unknown]
  - General physical health deterioration [Unknown]
  - Altered state of consciousness [Unknown]
  - Hypoxia [Unknown]
  - Pharyngeal swelling [Unknown]
  - Fall [Unknown]
  - Hereditary angioedema [Unknown]
  - Oropharyngeal oedema [Unknown]
  - Asphyxia [Unknown]
  - Loss of consciousness [Unknown]
  - Tongue oedema [Unknown]
  - Osteonecrosis [Unknown]
  - Pain [Unknown]
  - Fear [Unknown]
  - Asthenia [Unknown]

NARRATIVE: CASE EVENT DATE: 20230401
